FAERS Safety Report 8419831-6 (Version None)
Quarter: 2012Q2

REPORT INFORMATION
  Report Type: 
  Country: None (occurrence: None)
  Receive Date: 20120323
  Receipt Date: 20111214
  Transmission Date: 20120825
  Serious: Yes (Hospitalization)
  Sender: FDA-Public Use
  Company Number: 163-21880-11121838

PATIENT
  Age: 83 Year
  Sex: Female
  Weight: 75.7507 kg

DRUGS (11)
  1. TIZANIDINE HCL [Concomitant]
  2. VITAMIN D [Concomitant]
  3. OSCAL (CALCIUM CARBONATE) [Concomitant]
  4. CRESTOR [Concomitant]
  5. MELOXICAM [Concomitant]
  6. SYNTHROID [Concomitant]
  7. REVLIMID [Suspect]
     Indication: MYELODYSPLASTIC SYNDROME
     Dosage: 5 MG, 1 IN 1 D, PO ; 5 MG, 1 IN 1 D, PO
     Route: 048
     Dates: start: 20111108, end: 20111123
  8. REVLIMID [Suspect]
     Indication: MYELODYSPLASTIC SYNDROME
     Dosage: 5 MG, 1 IN 1 D, PO ; 5 MG, 1 IN 1 D, PO
     Route: 048
     Dates: start: 20111203
  9. COREG [Concomitant]
  10. LISINOPRIL [Concomitant]
  11. PREDNISONE TAB [Concomitant]

REACTIONS (4)
  - MUSCLE SPASMS [None]
  - NECK PAIN [None]
  - BACK PAIN [None]
  - HYPOAESTHESIA [None]
